FAERS Safety Report 10273032 (Version 1)
Quarter: 2014Q2

REPORT INFORMATION
  Report Type: Spontaneous
  Country: CA (occurrence: None)
  Receive Date: 20140630
  Receipt Date: 20140630
  Transmission Date: 20141212
  Serious: Yes (Other)
  Sender: FDA-Public Use
  Company Number: PIN-2014-00009

PATIENT
  Age: 65 Year
  Sex: Female

DRUGS (1)
  1. PHOTOFRIN )PORFIMER SODIUM) [Suspect]
     Indication: BRONCHIAL CARCINOMA
     Route: 042

REACTIONS (6)
  - Stridor [None]
  - Tracheal obstruction [None]
  - Bronchial obstruction [None]
  - Skin exfoliation [None]
  - Bronchial secretion retention [None]
  - Respiratory failure [None]
